FAERS Safety Report 5420711-9 (Version None)
Quarter: 2007Q3

REPORT INFORMATION
  Report Type: 
  Country: None (occurrence: None)
  Receive Date: 20070816
  Receipt Date: 20070720
  Transmission Date: 20080115
  Serious: Yes (Other)
  Sender: FDA-Public Use
  Company Number: 6036228

PATIENT
  Age: 29 Year
  Sex: Female

DRUGS (4)
  1. FLUCONAZOLE [Suspect]
     Indication: BODY TINEA
     Dosage: 150 MG (150 MG,1 IN 1 D)
  2. CARBAMAZEPINE [Suspect]
     Indication: PARTIAL SEIZURES
     Dosage: 1600 MG (1600 MG,1 IN 1 D)
  3. LAMOTRIGINE [Concomitant]
  4. BARBEXACLONE (BARBEXACLONE) [Concomitant]

REACTIONS (11)
  - CEREBELLAR SYNDROME [None]
  - DIPLOPIA [None]
  - DIZZINESS [None]
  - DRUG INTERACTION [None]
  - GAIT DISTURBANCE [None]
  - ILL-DEFINED DISORDER [None]
  - NAUSEA [None]
  - NYSTAGMUS [None]
  - OSCILLOPSIA [None]
  - VISION BLURRED [None]
  - VOMITING [None]
